FAERS Safety Report 14374180 (Version 2)
Quarter: 2018Q1

REPORT INFORMATION
  Report Type: Spontaneous
  Country: SI (occurrence: SI)
  Receive Date: 20180111
  Receipt Date: 20180114
  Transmission Date: 20180509
  Serious: Yes (Life-Threatening, Other)
  Sender: FDA-Public Use
  Company Number: SI-DEXPHARM-20171974

PATIENT
  Sex: Female
  Weight: 1.37 kg

DRUGS (2)
  1. ETHANOL 70% [Suspect]
     Active Substance: ALCOHOL
     Dosage: 2.5ML OF 0.5% CHLORHEXIDINE IN 70% ETHANOL
     Route: 042
  2. CHLORHEXIDINE .5 % [Suspect]
     Active Substance: CHLORHEXIDINE
     Dosage: 2.5ML OF 0.5% CHLORHEXIDINE IN 70% ETHANOL
     Route: 042

REACTIONS (6)
  - Medication error [Unknown]
  - Unresponsive to stimuli [Recovered/Resolved]
  - Haematuria [Recovered/Resolved]
  - Hyperbilirubinaemia [Recovered/Resolved]
  - Apnoea [Recovered/Resolved]
  - Haemoglobin decreased [Recovered/Resolved]
